FAERS Safety Report 8349119-3 (Version None)
Quarter: 2012Q2

REPORT INFORMATION
  Report Type: 
  Country: None (occurrence: None)
  Receive Date: 20120510
  Receipt Date: 20120503
  Transmission Date: 20120825
  Serious: Yes (Other)
  Sender: FDA-Public Use
  Company Number: US-UCBSA-056726

PATIENT
  Sex: Female

DRUGS (2)
  1. ANTI-SEIZURE MEDICATION [Concomitant]
  2. VIMPAT [Suspect]
     Indication: CONVULSION
     Dosage: UNKNOWN DOSE
     Dates: end: 20120101

REACTIONS (1)
  - CONVULSION [None]
